FAERS Safety Report 4712797-1 (Version None)
Quarter: 2005Q3

REPORT INFORMATION
  Report Type: 
  Country: None (occurrence: None)
  Receive Date: 20050711
  Receipt Date: 20050711
  Transmission Date: 20060218
  Serious: Yes (Life-Threatening)
  Sender: FDA-Public Use
  Company Number: None

PATIENT
  Sex: Male
  Weight: 43.0917 kg

DRUGS (6)
  1. ABILIFY [Suspect]
     Indication: BIPOLAR DISORDER
     Dosage: 15 MG ONCE DAILY (SEE B5)
     Dates: start: 20040401, end: 20050624
  2. CARNITINE [Concomitant]
  3. COENZYME Q10 [Concomitant]
  4. TOPAMAX [Concomitant]
  5. LITHIUM [Concomitant]
  6. MELATONIN [Concomitant]

REACTIONS (11)
  - ABNORMAL BEHAVIOUR [None]
  - AGGRESSION [None]
  - ANGER [None]
  - CONDITION AGGRAVATED [None]
  - CONVULSION [None]
  - HALLUCINATION, AUDITORY [None]
  - HALLUCINATION, VISUAL [None]
  - INSOMNIA [None]
  - MANIA [None]
  - PARANOIA [None]
  - SUICIDE ATTEMPT [None]
